FAERS Safety Report 6208175-9 (Version None)
Quarter: 2009Q2

REPORT INFORMATION
  Report Type: 
  Country: None (occurrence: None)
  Receive Date: 20090529
  Receipt Date: 20090526
  Transmission Date: 20091009
  Serious: Yes (Death)
  Sender: FDA-Public Use
  Company Number: US-BRISTOL-MYERS SQUIBB COMPANY-14586077

PATIENT
  Age: 77 Year
  Sex: Male

DRUGS (8)
  1. COUMADIN [Suspect]
     Dates: start: 20030101
  2. ALBUTEROL [Suspect]
  3. AZITHROMYCIN [Suspect]
     Dosage: FORM:TAB
  4. CYANOCOBALAMIN [Suspect]
  5. SIMVASTATIN [Suspect]
  6. DIGOXIN [Suspect]
  7. FUROSEMIDE [Suspect]
  8. POTASSIUM CHLORIDE [Suspect]

REACTIONS (1)
  - SEPSIS [None]
